FAERS Safety Report 18257957 (Version 1)
Quarter: 2020Q3

REPORT INFORMATION
  Report Type: Spontaneous
  Country: US (occurrence: US)
  Receive Date: 20200911
  Receipt Date: 20200911
  Transmission Date: 20201103
  Serious: Yes (Life-Threatening, Hospitalization)
  Sender: FDA-Public Use
  Company Number: None

PATIENT
  Age: 74 Year
  Sex: Male

DRUGS (1)
  1. FLECAINIDE [Suspect]
     Active Substance: FLECAINIDE
     Route: 048

REACTIONS (5)
  - Essential hypertension [None]
  - Atrial fibrillation [None]
  - Atrial flutter [None]
  - Extra dose administered [None]
  - Toxicity to various agents [None]

NARRATIVE: CASE EVENT DATE: 20200516
